FAERS Safety Report 5461153-X (Version None)
Quarter: 2007Q3

REPORT INFORMATION
  Report Type: 
  Country: None (occurrence: None)
  Receive Date: 20070920
  Receipt Date: 20070910
  Transmission Date: 20080115
  Serious: Yes (Other)
  Sender: FDA-Public Use
  Company Number: GB-JNJFOC-20070902371

PATIENT
  Sex: Male

DRUGS (2)
  1. REMINYL XR [Suspect]
  2. REMINYL XR [Suspect]
     Indication: DRUG USE FOR UNKNOWN INDICATION
     Dosage: DISPENSED AS 8 MG AND 16 MG CAPSULES

REACTIONS (2)
  - ACCIDENTAL OVERDOSE [None]
  - DRUG DISPENSING ERROR [None]
